FAERS Safety Report 23123060 (Version 2)
Quarter: 2024Q1

REPORT INFORMATION
  Report Type: Spontaneous
  Country: US (occurrence: US)
  Receive Date: 20231030
  Receipt Date: 20240130
  Transmission Date: 20240409
  Serious: Yes (Hospitalization)
  Sender: FDA-Public Use
  Company Number: US-ABBVIE-5463732

PATIENT
  Sex: Male
  Weight: 62 kg

DRUGS (1)
  1. SKYRIZI [Suspect]
     Active Substance: RISANKIZUMAB-RZAA
     Indication: Crohn^s disease
     Dosage: FORM STRENGTH: 360 MILLIGRAM?START DATE TEXT: 7-11 MONTHS
     Route: 058

REACTIONS (3)
  - Unevaluable event [Unknown]
  - Illness [Unknown]
  - Device issue [Unknown]
